FAERS Safety Report 9098675 (Version 1)
Quarter: 2013Q1

REPORT INFORMATION
  Report Type: Spontaneous
  Country: FR (occurrence: FR)
  Receive Date: 20130213
  Receipt Date: 20130213
  Transmission Date: 20140127
  Serious: Yes (Hospitalization)
  Sender: FDA-Public Use
  Company Number: FR-ASTRAZENECA-2013SE09321

PATIENT
  Age: 83 Year
  Sex: Female

DRUGS (6)
  1. HYTACAND [Suspect]
     Indication: HYPERTENSION
     Dosage: 16/12.5 MG/D
     Route: 048
     Dates: start: 201206, end: 20130118
  2. SEROPLEX [Suspect]
     Indication: DEPRESSION
     Route: 048
     Dates: start: 20130107, end: 20130114
  3. SEROPLEX [Suspect]
     Indication: DEPRESSION
     Route: 048
     Dates: start: 20121218, end: 20121225
  4. PLAVIX [Concomitant]
  5. FORADIL [Concomitant]
  6. STILNOX [Concomitant]

REACTIONS (5)
  - Fall [Unknown]
  - Nausea [Unknown]
  - Vomiting [Unknown]
  - Dizziness [Unknown]
  - Hyponatraemia [Recovered/Resolved]
